FAERS Safety Report 6914413-7 (Version None)
Quarter: 2010Q3

REPORT INFORMATION
  Report Type: 
  Country: None (occurrence: None)
  Receive Date: 20100803
  Receipt Date: 20100730
  Transmission Date: 20110219
  Serious: No
  Sender: FDA-Public Use
  Company Number: 2010-0005

PATIENT
  Age: 6 Year
  Sex: Male

DRUGS (1)
  1. LEVETIRACETAM [Suspect]
     Indication: CEREBRAL VENOUS THROMBOSIS
     Dosage: 500 MG TID

REACTIONS (1)
  - THROMBOCYTOPENIA [None]
